FAERS Safety Report 16288840 (Version 1)
Quarter: 2019Q2

REPORT INFORMATION
  Report Type: Spontaneous
  Country: FR (occurrence: FR)
  Receive Date: 20190509
  Receipt Date: 20190509
  Transmission Date: 20190711
  Serious: Yes (Life-Threatening, Hospitalization)
  Sender: FDA-Public Use
  Company Number: FR-ROCHE-2315490

PATIENT
  Age: 64 Year
  Sex: Female
  Weight: 64 kg

DRUGS (2)
  1. KADCYLA [Suspect]
     Active Substance: ADO-TRASTUZUMAB EMTANSINE
     Indication: BREAST CANCER
     Dosage: 1/CURE
     Route: 041
     Dates: start: 20180924, end: 20190204
  2. INNOHEP [Concomitant]
     Active Substance: TINZAPARIN SODIUM

REACTIONS (2)
  - Subdural haematoma [Recovered/Resolved]
  - Thrombocytopenia [Not Recovered/Not Resolved]

NARRATIVE: CASE EVENT DATE: 20190213
